FAERS Safety Report 5810431-0 (Version None)
Quarter: 2008Q3

REPORT INFORMATION
  Report Type: 
  Country: None (occurrence: None)
  Receive Date: 20080709
  Receipt Date: 20080703
  Transmission Date: 20090109
  Serious: Yes (Death)
  Sender: FDA-Public Use
  Company Number: 2008-180116-NL

PATIENT
  Age: 52 Year
  Sex: Male

DRUGS (5)
  1. MIRTAZAPINE [Suspect]
     Dosage: 15 MG ORAL
     Route: 048
     Dates: start: 20020913
  2. ZOLPIDEM [Suspect]
     Indication: SLEEP DISORDER
     Dosage: 10 MG ORAL
     Route: 048
     Dates: start: 20020906, end: 20020922
  3. DIAZEPAM [Concomitant]
  4. VITAMIN TAB [Concomitant]
  5. ST. JOHN'S WORT [Concomitant]

REACTIONS (6)
  - ABNORMAL BEHAVIOUR [None]
  - AGITATION [None]
  - COMPLETED SUICIDE [None]
  - CONFUSIONAL STATE [None]
  - DEPRESSED MOOD [None]
  - MOOD SWINGS [None]
